FAERS Safety Report 26022535 (Version 1)
Quarter: 2025Q4

REPORT INFORMATION
  Report Type: Spontaneous
  Country: US (occurrence: BR)
  Receive Date: 20251110
  Receipt Date: 20251110
  Transmission Date: 20260117
  Serious: Yes (Hospitalization, Other)
  Sender: VALIDUS
  Company Number: US-VALIDUS PHARMACEUTICALS LLC-VLDS-RB-2025-00282

PATIENT

DRUGS (16)
  1. CARBAMAZEPINE [Interacting]
     Active Substance: CARBAMAZEPINE
     Indication: Pain
     Dosage: 200 MILLIGRAM, TID
     Route: 065
  2. CARBAMAZEPINE [Interacting]
     Active Substance: CARBAMAZEPINE
     Indication: Depression
  3. REPLAGAL [Interacting]
     Active Substance: AGALSIDASE ALFA
     Indication: Fabry^s disease
     Dosage: 4 DOSAGE FORM (PER MONTH)
     Route: 042
     Dates: start: 2002
  4. REPLAGAL [Interacting]
     Active Substance: AGALSIDASE ALFA
     Dosage: 0.02 MILLIGRAM/KILOGRAM
     Route: 042
  5. REPLAGAL [Interacting]
     Active Substance: AGALSIDASE ALFA
     Dosage: UNK, Q2WK
     Route: 065
  6. REPLAGAL [Interacting]
     Active Substance: AGALSIDASE ALFA
     Dosage: 0.2 MILLIGRAM/KILOGRAM, Q2WK
     Route: 042
  7. ASPIRIN [Concomitant]
     Active Substance: ASPIRIN
     Indication: Product used for unknown indication
     Dosage: UNK
     Route: 065
  8. CALCIUM [Concomitant]
     Active Substance: CALCIUM
     Indication: Product used for unknown indication
     Dosage: UNK
     Route: 065
  9. DIOSMIN [Concomitant]
     Active Substance: DIOSMIN
     Indication: Product used for unknown indication
     Dosage: UNK
     Route: 065
  10. CAFFEINE\DIPYRONE\ORPHENADRINE [Concomitant]
     Active Substance: CAFFEINE\DIPYRONE\ORPHENADRINE
     Indication: Pain
     Dosage: UNK
     Route: 065
  11. CAFFEINE\DIPYRONE\ORPHENADRINE [Concomitant]
     Active Substance: CAFFEINE\DIPYRONE\ORPHENADRINE
     Indication: Depression
  12. FLUOXETINE [Concomitant]
     Active Substance: FLUOXETINE HYDROCHLORIDE
     Indication: Pain
     Dosage: 20 MILLIGRAM
     Route: 065
  13. FLUOXETINE [Concomitant]
     Active Substance: FLUOXETINE HYDROCHLORIDE
     Indication: Depression
  14. HYDROCHLOROTHIAZIDE [Concomitant]
     Active Substance: HYDROCHLOROTHIAZIDE
     Indication: Product used for unknown indication
     Dosage: UNK
     Route: 065
  15. NORTRIPTYLINE [Concomitant]
     Active Substance: NORTRIPTYLINE
     Indication: Pain
     Dosage: UNK
     Route: 065
  16. NORTRIPTYLINE [Concomitant]
     Active Substance: NORTRIPTYLINE
     Indication: Depression

REACTIONS (12)
  - Myocardial infarction [Unknown]
  - Depressed level of consciousness [Unknown]
  - Left ventricular hypertrophy [Unknown]
  - Limb discomfort [Unknown]
  - Troponin increased [Unknown]
  - Malaise [Unknown]
  - Drug interaction [Unknown]
  - Chest pain [Unknown]
  - Fatigue [Unknown]
  - Depressed mood [Unknown]
  - Memory impairment [Unknown]
  - Dyspnoea exertional [Unknown]

NARRATIVE: CASE EVENT DATE: 20090101
